FAERS Safety Report 11220647 (Version 1)
Quarter: 2015Q2

REPORT INFORMATION
  Report Type: Spontaneous
  Country: US (occurrence: None)
  Receive Date: 20150625
  Receipt Date: 20150625
  Transmission Date: 20150821
  Serious: Yes (Life-Threatening, Hospitalization)
  Sender: FDA-Public Use
  Company Number: None

PATIENT
  Age: 91 Year
  Sex: Male
  Weight: 96.9 kg

DRUGS (1)
  1. ASPIRIN. [Suspect]
     Active Substance: ASPIRIN
     Indication: PROPHYLAXIS
     Route: 048
     Dates: start: 20141029, end: 20150412

REACTIONS (5)
  - Gastric haemorrhage [None]
  - Nausea [None]
  - Faeces discoloured [None]
  - Abdominal pain upper [None]
  - Lethargy [None]

NARRATIVE: CASE EVENT DATE: 20150412
